FAERS Safety Report 21302767 (Version 1)
Quarter: 2022Q3

REPORT INFORMATION
  Report Type: Spontaneous
  Country: BR (occurrence: BR)
  Receive Date: 20220907
  Receipt Date: 20220907
  Transmission Date: 20221026
  Serious: Yes (Hospitalization)
  Sender: FDA-Public Use
  Company Number: BR-PFIZER INC-PV202200057639

PATIENT
  Age: 76 Year
  Sex: Male
  Weight: 75 kg

DRUGS (1)
  1. SUTENT [Suspect]
     Active Substance: SUNITINIB MALATE
     Dosage: UNK
     Dates: start: 20220414

REACTIONS (8)
  - Syncope [Recovering/Resolving]
  - Fall [Recovering/Resolving]
  - Asthenia [Recovering/Resolving]
  - Feeding disorder [Recovering/Resolving]
  - Dry mouth [Recovering/Resolving]
  - Weight decreased [Unknown]
  - Stomatitis [Unknown]
  - Malaise [Unknown]

NARRATIVE: CASE EVENT DATE: 20220831
